FAERS Safety Report 11659204 (Version 6)
Quarter: 2016Q1

REPORT INFORMATION
  Report Type: Spontaneous
  Country: US (occurrence: US)
  Receive Date: 20151026
  Receipt Date: 20160126
  Transmission Date: 20160525
  Serious: No
  Sender: FDA-Public Use
  Company Number: US-PFIZER INC-2015352814

PATIENT
  Age: 54 Year
  Sex: Female
  Weight: 72 kg

DRUGS (13)
  1. PANTOPRAZOLE [Concomitant]
     Active Substance: PANTOPRAZOLE SODIUM
     Dosage: 40 MG, 1X/DAY
     Dates: start: 20150919
  2. LYRICA [Suspect]
     Active Substance: PREGABALIN
     Dosage: 100 MG, 2X/DAY
     Route: 048
     Dates: start: 20151217
  3. SERTRALINE HCL [Concomitant]
     Active Substance: SERTRALINE HYDROCHLORIDE
     Dosage: 25 MG, 2X/DAY
     Route: 048
     Dates: start: 20151116
  4. VALIUM [Concomitant]
     Active Substance: DIAZEPAM
     Dosage: 5 MG, AS NEEDED
  5. TRAMADOL. [Concomitant]
     Active Substance: TRAMADOL
     Indication: PAIN
     Dosage: 50 MG, AS NEEDED (1 EVERY 6-8 HRS AS NEEDED)
  6. IBUPROFEN. [Concomitant]
     Active Substance: IBUPROFEN
     Dosage: 800 MG, AS NEEDED  (3 TIMES A DAY; TAKE 1 ORAL TABLET ONCE A DAY AS NEEDED)
     Dates: start: 20150217
  7. LYRICA [Suspect]
     Active Substance: PREGABALIN
     Indication: NEUROPATHY PERIPHERAL
     Dosage: 100 MG, 1X/DAY
     Route: 048
     Dates: start: 201508
  8. LYRICA [Suspect]
     Active Substance: PREGABALIN
     Dosage: 100 MG, 2X/DAY( 10 AM IN THE MORNING AND 10 PM AT NIGHT)
     Route: 048
  9. TRAMADOL. [Concomitant]
     Active Substance: TRAMADOL
     Dosage: 50 MG, AS NEEDED(ONE TABLET BY MOUTH EVERY 1 TO 8 HOURS AS NEEDED)
     Route: 048
     Dates: start: 20151229
  10. DIAZEPAM. [Concomitant]
     Active Substance: DIAZEPAM
     Dosage: 5 MG, AS NEEDED (2-3 TIMES DAILY AS NEEDED)
     Route: 048
     Dates: start: 20151229
  11. AMITRIPTYLINE [Concomitant]
     Active Substance: AMITRIPTYLINE
     Indication: SLEEP DISORDER
     Dosage: 25 MG, AS NEEDED (1 OR 2 TABLETS BY MOUTH AT BEDTIME AS NEEDED)
     Route: 048
     Dates: start: 20151130
  12. PHENTERMINE. [Concomitant]
     Active Substance: PHENTERMINE
     Indication: WEIGHT
     Dosage: 37.5 MG, 1X/DAY
     Route: 048
     Dates: start: 20151204
  13. HYDROCHLOROTHIAZIDE. [Concomitant]
     Active Substance: HYDROCHLOROTHIAZIDE
     Indication: OEDEMA
     Dosage: 25 MG, 1X/DAY (TAKE 1 ORAL TABLET ONCE A DAY AS NEEDED)
     Route: 048
     Dates: start: 20150702

REACTIONS (5)
  - Nasopharyngitis [Recovered/Resolved]
  - Aphonia [Unknown]
  - Respiratory tract congestion [Recovered/Resolved]
  - Drug ineffective [Unknown]
  - Cough [Recovered/Resolved]

NARRATIVE: CASE EVENT DATE: 201510
